FAERS Safety Report 6095605-9 (Version None)
Quarter: 2009Q1

REPORT INFORMATION
  Report Type: 
  Country: None (occurrence: None)
  Receive Date: 20090227
  Receipt Date: 20080505
  Transmission Date: 20090719
  Serious: No
  Sender: FDA-Public Use
  Company Number: A0726191A

PATIENT
  Age: 63 Year
  Sex: Female

DRUGS (5)
  1. LAMICTAL [Suspect]
     Indication: BIPOLAR DISORDER
     Dosage: 175MG PER DAY
     Route: 048
     Dates: start: 20061201
  2. INDERAL [Concomitant]
  3. CLONAZEPAM [Concomitant]
  4. ABILIFY [Concomitant]
  5. LEXAPRO [Concomitant]

REACTIONS (1)
  - DIPLOPIA [None]
